FAERS Safety Report 9120304 (Version 2)
Quarter: 2013Q2

REPORT INFORMATION
  Report Type: Spontaneous
  Country: JP (occurrence: JP)
  Receive Date: 20130226
  Receipt Date: 20130408
  Transmission Date: 20140414
  Serious: Yes (Death, Other)
  Sender: FDA-Public Use
  Company Number: JP-ELI_LILLY_AND_COMPANY-JP201302008452

PATIENT
  Age: 79 Year
  Sex: Male

DRUGS (2)
  1. GEMZAR [Suspect]
     Indication: BLADDER CANCER
     Dosage: UNK
     Route: 042
     Dates: start: 201109
  2. CISPLATIN [Concomitant]
     Indication: BLADDER CANCER
     Dosage: UNK
     Route: 042
     Dates: start: 201109

REACTIONS (3)
  - Metastases to meninges [Fatal]
  - Bone marrow failure [Unknown]
  - Bone marrow failure [Unknown]
